FAERS Safety Report 6918082-1 (Version None)
Quarter: 2010Q3

REPORT INFORMATION
  Report Type: 
  Country: None (occurrence: None)
  Receive Date: 20100806
  Receipt Date: 20100723
  Transmission Date: 20110219
  Serious: Yes (Hospitalization)
  Sender: FDA-Public Use
  Company Number: 1000015480

PATIENT
  Sex: Male

DRUGS (2)
  1. MEMANTINE HCL [Suspect]
     Dosage: ORAL
     Route: 048
  2. RIVASTIGMINE (TABLETS) [Concomitant]

REACTIONS (1)
  - BONE MARROW FAILURE [None]
